FAERS Safety Report 17022427 (Version 2)
Quarter: 2020Q3

REPORT INFORMATION
  Report Type: Report from Study
  Country: CA (occurrence: CA)
  Receive Date: 20191112
  Receipt Date: 20200723
  Transmission Date: 20201102
  Serious: Yes (Hospitalization, Other)
  Sender: FDA-Public Use
  Company Number: CA-ACTELION-A-US2019-197870

PATIENT
  Age: 70 Year
  Sex: Female
  Weight: 86.17 kg

DRUGS (18)
  1. PANTOPRAZOLE [Concomitant]
     Active Substance: PANTOPRAZOLE
     Dosage: 40 MG, QAM
  2. APO?FUROSEMIDE [Concomitant]
     Active Substance: FUROSEMIDE
     Dosage: 60 MG, QAM
  3. NOVO?GESIC [Concomitant]
     Active Substance: ACETAMINOPHEN
     Dosage: 500 MG, BID
  4. KADIAN [Concomitant]
     Active Substance: MORPHINE SULFATE
     Dosage: 10 MG, QAM
  5. ADALAT CC [Concomitant]
     Active Substance: NIFEDIPINE
     Dosage: 200 MG, QAM
  6. NOVO?GESIC [Concomitant]
     Active Substance: ACETAMINOPHEN
     Dosage: 1000 MG, QD
  7. APO?NAPROXEN [Concomitant]
     Active Substance: NAPROXEN
     Dosage: 500 MG, BID
  8. ATIVAN [Concomitant]
     Active Substance: LORAZEPAM
     Dosage: 0.5 MG, QPM
  9. CITALOPRAM [Concomitant]
     Active Substance: CITALOPRAM HYDROBROMIDE
     Dosage: 40 MG, QAM
  10. APO?FUROSEMIDE [Concomitant]
     Active Substance: FUROSEMIDE
     Dosage: 20 MG, TID
  11. OPSUMIT [Suspect]
     Active Substance: MACITENTAN
     Indication: PULMONARY HYPERTENSION
     Dosage: 10 MG, QD
     Route: 048
     Dates: start: 20160920
  12. ADCIRCA [Concomitant]
     Active Substance: TADALAFIL
  13. ABILIFY [Concomitant]
     Active Substance: ARIPIPRAZOLE
     Dosage: 2 MG, QAM
  14. PREGABALIN. [Concomitant]
     Active Substance: PREGABALIN
     Dosage: 100 MG, QPM
  15. SYNTHROID [Concomitant]
     Active Substance: LEVOTHYROXINE SODIUM
     Dosage: 0.100 MG, QAM
  16. ALDACTONE [Concomitant]
     Active Substance: SPIRONOLACTONE
  17. CORTISONE [Concomitant]
     Active Substance: CORTISONE
  18. LOWPRIN [Concomitant]

REACTIONS (4)
  - Cataract operation [Recovering/Resolving]
  - Swelling face [Recovering/Resolving]
  - Fatigue [Recovering/Resolving]
  - Weight increased [Recovering/Resolving]

NARRATIVE: CASE EVENT DATE: 20191022
